FAERS Safety Report 8509507 (Version 2)
Quarter: 2013Q1

REPORT INFORMATION
  Report Type: Spontaneous
  Country: JP (occurrence: JP)
  Receive Date: 20120413
  Receipt Date: 20130305
  Transmission Date: 20140127
  Serious: Yes (Life-Threatening, Hospitalization, Disabling, Other)
  Sender: FDA-Public Use
  Company Number: JP-AMGEN-JPNSP2012018067

PATIENT
  Age: 27 Year
  Sex: Female
  Weight: 50 kg

DRUGS (11)
  1. ENBREL [Suspect]
     Indication: RHEUMATOID ARTHRITIS
     Dosage: 25 MG, 2X/WEEK
     Route: 058
     Dates: start: 201001, end: 201112
  2. RHEUMATREX /00113802/ [Concomitant]
     Indication: RHEUMATOID ARTHRITIS
     Dosage: 6 MG, WEEKLY
     Route: 048
     Dates: start: 200608
  3. RHEUMATREX /00113802/ [Concomitant]
     Dosage: 10 MG, WEEKLY
     Route: 048
  4. RHEUMATREX /00113802/ [Concomitant]
     Dosage: 8 MG, WEEKLY
     Route: 048
  5. FOLIAMIN [Concomitant]
     Indication: RHEUMATOID ARTHRITIS
     Dosage: 5 MG, WEEKLY
     Route: 048
  6. METHYCOBAL [Concomitant]
     Dosage: 1500 MG/DAY
     Route: 048
  7. AIROMATE [Concomitant]
     Dosage: 40 MG/DAY
     Route: 048
  8. REBAMIPIDE [Concomitant]
     Dosage: 200 MG/DAY
     Route: 048
  9. CERCINE [Concomitant]
     Dosage: 2 MG/DAY
     Route: 048
  10. CERCINE [Concomitant]
     Dosage: 2 MG/DAY
  11. SHAKUYAKUKANZOTO [Concomitant]
     Dosage: 2.5 G/DAY
     Route: 048

REACTIONS (1)
  - Demyelination [Recovered/Resolved with Sequelae]
